FAERS Safety Report 6037983-2 (Version None)
Quarter: 2009Q1

REPORT INFORMATION
  Report Type: 
  Country: None (occurrence: None)
  Receive Date: 20090113
  Receipt Date: 20090113
  Transmission Date: 20090719
  Serious: Yes (Other)
  Sender: FDA-Public Use
  Company Number: None

PATIENT
  Sex: Female
  Weight: 57.6068 kg

DRUGS (4)
  1. LAMOTRIGINE [Suspect]
     Indication: CONVULSION
     Dosage: 200MG 2 TIMES DAILY ABOUT 5 WEEKS
  2. ALENDRONATE SODIUM [Concomitant]
  3. CITRICAL [Concomitant]
  4. FLUNISOLIDE [Concomitant]

REACTIONS (6)
  - BALANCE DISORDER [None]
  - DISCOMFORT [None]
  - DIZZINESS [None]
  - HEADACHE [None]
  - PRODUCT QUALITY ISSUE [None]
  - VERTIGO [None]
